FAERS Safety Report 11424174 (Version 1)
Quarter: 2015Q3

REPORT INFORMATION
  Report Type: Spontaneous
  Country: US (occurrence: US)
  Receive Date: 20150827
  Receipt Date: 20150827
  Transmission Date: 20151125
  Serious: No
  Sender: FDA-Public Use
  Company Number: US-BAYER-2015-407721

PATIENT
  Age: 81 Year
  Sex: Female
  Weight: 63.49 kg

DRUGS (3)
  1. CLARITIN [Suspect]
     Active Substance: LORATADINE
     Indication: SEASONAL ALLERGY
     Dosage: 1 DF, QD WITH FOOD
     Route: 048
     Dates: start: 20150818, end: 20150819
  2. XANAX [Concomitant]
     Active Substance: ALPRAZOLAM
     Route: 048
  3. NASOCORT [Concomitant]
     Active Substance: BUDESONIDE

REACTIONS (2)
  - Insomnia [Recovered/Resolved]
  - Insomnia [Recovered/Resolved]

NARRATIVE: CASE EVENT DATE: 20150818
